FAERS Safety Report 5754558-0 (Version None)
Quarter: 2008Q2

REPORT INFORMATION
  Report Type: 
  Country: None (occurrence: None)
  Receive Date: 20080530
  Receipt Date: 20080519
  Transmission Date: 20081010
  Serious: Yes (Hospitalization)
  Sender: FDA-Public Use
  Company Number: DE-PFIZER INC-2008042971

PATIENT
  Age: 53 Year
  Sex: Female

DRUGS (2)
  1. AROMASIN [Suspect]
     Indication: BREAST CANCER
     Route: 048
  2. EPIRUBICIN [Suspect]
     Indication: BREAST CANCER

REACTIONS (1)
  - LEFT VENTRICULAR FAILURE [None]
